FAERS Safety Report 20112366 (Version 1)
Quarter: 2021Q4

REPORT INFORMATION
  Report Type: Other
  Country: US (occurrence: None)
  Receive Date: 20211125
  Receipt Date: 20211125
  Transmission Date: 20220303
  Serious: Yes (Hospitalization)
  Sender: FDA-Public Use
  Company Number: US-ROCHE-2962139

PATIENT
  Age: 46 Year
  Sex: Female

DRUGS (16)
  1. OCREVUS [Suspect]
     Active Substance: OCRELIZUMAB
     Indication: Secondary progressive multiple sclerosis
     Dosage: FIRST TWO HALF DOSES
     Route: 042
     Dates: start: 20210312, end: 20210322
  2. OCREVUS [Suspect]
     Active Substance: OCRELIZUMAB
     Route: 042
     Dates: start: 202109
  3. SERTRALINE [Concomitant]
     Active Substance: SERTRALINE HYDROCHLORIDE
     Indication: Depression
     Dosage: STARTED ABOUT 2 YEARS AGO ;ONGOING: YES
     Route: 048
  4. TRAZODONE HCL [Concomitant]
     Active Substance: TRAZODONE HYDROCHLORIDE
     Indication: Insomnia
     Dosage: TAKES AT NIGHT; STARTED ABOUT 1.5 YEARS AGO ;ONGOING: YES
     Route: 048
  5. TRAZODONE HCL [Concomitant]
     Active Substance: TRAZODONE HYDROCHLORIDE
     Indication: Depression
  6. ATORVASTATIN CALCIUM [Concomitant]
     Active Substance: ATORVASTATIN CALCIUM
     Indication: Blood cholesterol increased
     Dosage: TAKES AT NIGHT; STARTED ABOUT 3 YEARS AGO ;ONGOING: YES
     Route: 048
  7. CYCLOBENZAPRINE [Concomitant]
     Active Substance: CYCLOBENZAPRINE
     Indication: Muscle spasms
     Dosage: CAN TAKE UP TO 3 TIMES DAILY ;ONGOING: YES
     Route: 048
     Dates: start: 2021
  8. GABAPENTIN [Concomitant]
     Active Substance: GABAPENTIN
     Indication: Neuralgia
     Dosage: STARTED ABOUT 5 YEARS AGO ;ONGOING: YES
     Route: 048
  9. ZYRTEC (UNITED STATES) [Concomitant]
     Indication: Pruritus
     Dosage: (2) 10 MG TABLETS AT NIGHT; STARTED ABOUT 1.5 YEARS AGO ;ONGOING: YES
     Route: 048
  10. MINERALS\VITAMINS [Concomitant]
     Active Substance: MINERALS\VITAMINS
     Dosage: TAKES ONE DAILY: STARTED ABOUT 5 YEARS AGO ;ONGOING: YES
     Route: 048
  11. VITAMIN D3 [Concomitant]
     Active Substance: CHOLECALCIFEROL
     Indication: Vitamin D decreased
     Dosage: (2) 125 MCG TABLETS ONCE A DAY; STARTED ABOUT 2 YEARS AGO ;ONGOING: YES
     Route: 048
  12. VITAMIN B12 [Concomitant]
     Active Substance: CYANOCOBALAMIN
     Indication: Vitamin B complex deficiency
     Dosage: STARTED ABOUT 2 YEARS AGO ;ONGOING: YES
     Route: 048
  13. BIOTIN [Concomitant]
     Active Substance: BIOTIN
     Dosage: YES
     Route: 048
     Dates: start: 202101
  14. IRON [Concomitant]
     Active Substance: IRON
     Indication: Blood iron decreased
     Dosage: STARTED ABOUT 3 YEARS AGO ;ONGOING: YES
     Route: 048
  15. MELATONIN [Concomitant]
     Active Substance: MELATONIN
     Indication: Insomnia
     Dosage: TAKES AT NIGHT; STARTED ABOUT 1.5 YEARS AGO ;ONGOING: YES
     Route: 048
  16. APPLE CIDER VINEGAR [Concomitant]
     Active Substance: APPLE CIDER VINEGAR
     Dosage: TAKES IN THE MORNING; STARTED ABOUT 4 DAYS AGO ;ONGOING: YES
     Route: 048
     Dates: start: 202111

REACTIONS (2)
  - COVID-19 [Recovering/Resolving]
  - Muscle spasms [Not Recovered/Not Resolved]

NARRATIVE: CASE EVENT DATE: 20211023
